FAERS Safety Report 17966537 (Version 2)
Quarter: 2020Q3

REPORT INFORMATION
  Report Type: Spontaneous
  Country: GB (occurrence: GB)
  Receive Date: 20200630
  Receipt Date: 20200703
  Transmission Date: 20201103
  Serious: Yes (Hospitalization)
  Sender: FDA-Public Use
  Company Number: NVSC2020GB128602

PATIENT
  Age: 67 Year
  Sex: Male

DRUGS (15)
  1. AMPHOTERICIN B, LIPOSOME [Suspect]
     Active Substance: AMPHOTERICIN B
     Indication: PHAEOHYPHOMYCOSIS
  2. METHYLPREDNISOLONE. [Suspect]
     Active Substance: METHYLPREDNISOLONE
     Indication: IMMUNOSUPPRESSANT DRUG THERAPY
     Dosage: 500 MG
     Route: 042
     Dates: start: 2014
  3. TACROLIMUS. [Suspect]
     Active Substance: TACROLIMUS
     Indication: IMMUNOSUPPRESSANT DRUG THERAPY
     Dosage: 5?9 NG/ML
     Route: 065
     Dates: start: 2014
  4. VORICONAZOLE. [Suspect]
     Active Substance: VORICONAZOLE
     Indication: PHAEOHYPHOMYCOSIS
     Dosage: 6 MG/KG Q12 H (FOR THE INITIAL TWO DOSES)
     Route: 042
     Dates: start: 2014, end: 2014
  5. FLUCYTOSINE. [Concomitant]
     Active Substance: FLUCYTOSINE
     Dosage: 1.5 G, Q6H
     Route: 048
     Dates: start: 2014
  6. AMOXICILLIN. [Concomitant]
     Active Substance: AMOXICILLIN
     Indication: PHAEOHYPHOMYCOSIS
     Dosage: 3 GRAM DAILY;
     Route: 048
     Dates: start: 2014
  7. POSACONAZOLE [Suspect]
     Active Substance: POSACONAZOLE
     Dosage: 300 MG, BID (GASTRO?RESISTANT TABLETS; 300MG BID FOR TWO DOSES, FOLLOWED BY 300MG DAILY)
     Route: 048
     Dates: start: 2014, end: 2014
  8. FLUCYTOSINE. [Concomitant]
     Active Substance: FLUCYTOSINE
     Indication: PHAEOHYPHOMYCOSIS
     Dosage: UNK
     Route: 042
     Dates: start: 2014
  9. POSACONAZOLE [Suspect]
     Active Substance: POSACONAZOLE
     Indication: PHAEOHYPHOMYCOSIS
     Dosage: 600 MILLIGRAM DAILY; GASTRO?RESISTANT TABLETS; 300MG BID FOR TWO DOSES, FOLLOWED BY 300MG DAILY
     Route: 048
     Dates: start: 2014, end: 2014
  10. POSACONAZOLE [Suspect]
     Active Substance: POSACONAZOLE
     Dosage: 300 MG QD (DISCONTINUED AFTER EIGHT DOSES (DAY 17))
     Route: 042
     Dates: start: 2014, end: 2014
  11. ALEMTUZUMAB [Suspect]
     Active Substance: ALEMTUZUMAB
     Indication: IMMUNOSUPPRESSANT DRUG THERAPY
     Dosage: 30 MG
     Route: 058
     Dates: start: 2014
  12. AMPHOTERICIN B, LIPOSOME [Suspect]
     Active Substance: AMPHOTERICIN B
     Indication: FUNGAL INFECTION
     Dosage: 5 MG/KG QD
     Route: 065
     Dates: start: 2014
  13. PREDNISOLONE. [Suspect]
     Active Substance: PREDNISOLONE
     Indication: IMMUNOSUPPRESSANT DRUG THERAPY
     Dosage: 20 MILLIGRAM DAILY;
     Route: 065
     Dates: start: 2014
  14. VORICONAZOLE. [Suspect]
     Active Substance: VORICONAZOLE
     Dosage: 8 MG/KG DAILY; SUBSEQUENT DOSES
     Route: 042
     Dates: start: 2014
  15. VORICONAZOLE. [Suspect]
     Active Substance: VORICONAZOLE
     Dosage: UNK (CEMENT SPACER CONTAINING VORICONAZOLE IN THE RIGHT DISTAL FIBULA)
     Route: 042
     Dates: start: 2014

REACTIONS (10)
  - Flank pain [Unknown]
  - Lymphopenia [Unknown]
  - Pyrexia [Unknown]
  - Blood alkaline phosphatase increased [Unknown]
  - Pain in extremity [Unknown]
  - Brain abscess [Recovered/Resolved with Sequelae]
  - Fungal infection [Recovering/Resolving]
  - Enterococcal infection [Recovering/Resolving]
  - Phaeohyphomycosis [Recovered/Resolved with Sequelae]
  - Drug ineffective [Unknown]
